FAERS Safety Report 17263522 (Version 1)
Quarter: 2020Q1

REPORT INFORMATION
  Report Type: Spontaneous
  Country: US (occurrence: US)
  Receive Date: 20200113
  Receipt Date: 20200113
  Transmission Date: 20200409
  Serious: Yes (Hospitalization, Disabling)
  Sender: FDA-Public Use
  Company Number: None

PATIENT
  Age: 86 Year
  Sex: Male
  Weight: 83.25 kg

DRUGS (8)
  1. METOPROLOL 25MG [Concomitant]
     Active Substance: METOPROLOL
  2. MINOXIDIL 10MG [Concomitant]
  3. DONEPEZIL 10MG [Concomitant]
     Active Substance: DONEPEZIL
  4. LEVOTHYROXINE 150 MCG [Concomitant]
  5. LOSARTAN POTASSIUM - HCTZ  100-12.5MG [Concomitant]
  6. TAMSULOSIN 0.4 MG [Concomitant]
     Active Substance: TAMSULOSIN
  7. TREXALL [Suspect]
     Active Substance: METHOTREXATE SODIUM
     Indication: MYELODYSPLASTIC SYNDROME
     Dosage: ?          OTHER FREQUENCY:1 TAB BID ONCE A W;?
     Route: 048
     Dates: start: 20191212, end: 20200109
  8. SERTRALINE 50 MG [Concomitant]
     Active Substance: SERTRALINE HYDROCHLORIDE

REACTIONS (3)
  - Blood pressure increased [None]
  - Hip fracture [None]
  - Fall [None]

NARRATIVE: CASE EVENT DATE: 20200109
